FAERS Safety Report 8163033-8 (Version None)
Quarter: 2012Q1

REPORT INFORMATION
  Report Type: 
  Country: None (occurrence: None)
  Receive Date: 20120224
  Receipt Date: 20120215
  Transmission Date: 20120608
  Serious: Yes (Hospitalization)
  Sender: FDA-Public Use
  Company Number: JP-B.I. PHARMACEUTICALS,INC./RIDGEFIELD-2012-BP-00630NB

PATIENT
  Age: 72 Year
  Sex: Female
  Weight: 42 kg

DRUGS (12)
  1. YOKU-KAN-SAN [Concomitant]
     Route: 065
     Dates: start: 20111223
  2. DEPAS [Suspect]
     Route: 065
  3. NEODOPASOL (LEVODOPA_BENSERAZIDE HYDROCHLORIDE) [Suspect]
     Indication: PARKINSON'S DISEASE
     Route: 048
  4. COMTAN [Concomitant]
     Route: 065
  5. LAC-B [Concomitant]
     Indication: GASTRITIS
     Route: 065
  6. PRAMIPEXOLE DIHYDROCHLORIDE [Suspect]
     Indication: PARKINSON'S DISEASE
     Dosage: 1.5 MG
     Route: 048
     Dates: start: 20110101, end: 20120101
  7. LUDIOMIL [Suspect]
     Indication: DEPRESSION
     Route: 048
  8. MOTILIUM [Concomitant]
     Route: 065
  9. LANSOPRAZOLE [Concomitant]
     Route: 065
  10. LOXONIN [Concomitant]
     Route: 065
  11. SELBEX [Concomitant]
     Indication: GASTRITIS
     Route: 065
  12. ARICEPT [Suspect]
     Dosage: 5 MG
     Route: 065

REACTIONS (3)
  - HOSPITALISATION [None]
  - SALIVA ALTERED [None]
  - HALLUCINATION, VISUAL [None]
